FAERS Safety Report 20599389 (Version 2)
Quarter: 2022Q1

REPORT INFORMATION
  Report Type: Spontaneous
  Country: US (occurrence: US)
  Receive Date: 20220315
  Receipt Date: 20220322
  Transmission Date: 20220423
  Serious: Yes (Life-Threatening, Hospitalization, Other)
  Sender: FDA-Public Use
  Company Number: US-BION-010353

PATIENT
  Age: 17 Year
  Sex: Female

DRUGS (1)
  1. VALPROIC ACID [Suspect]
     Active Substance: VALPROIC ACID
     Indication: Product used for unknown indication
     Dosage: MASSIVE VPA INGESTION, VPA BOTTLE HAD 88 (EIGHTY EIGHT) 500 MG PILLS MISSING.

REACTIONS (12)
  - Toxicity to various agents [Unknown]
  - Overdose [Not Recovered/Not Resolved]
  - Coma [Recovered/Resolved]
  - Hypotension [Recovered/Resolved]
  - Metabolic disorder [Recovered/Resolved]
  - Pancreatitis necrotising [Recovered/Resolved]
  - Pancytopenia [Recovered/Resolved]
  - Seizure [Recovered/Resolved]
  - Shock [Recovered/Resolved]
  - Type 1 diabetes mellitus [Unknown]
  - Acute kidney injury [Recovered/Resolved]
  - Encephalopathy [Recovered/Resolved]
